FAERS Safety Report 8498125-7 (Version None)
Quarter: 2012Q3

REPORT INFORMATION
  Report Type: 
  Country: None (occurrence: None)
  Receive Date: 20120709
  Receipt Date: 20120620
  Transmission Date: 20120928
  Serious: No
  Sender: FDA-Public Use
  Company Number: US-AMGEN-USASP2011049509

PATIENT
  Age: 52 Year
  Sex: Female
  Weight: 63.946 kg

DRUGS (5)
  1. BUSPIRONE HCL [Concomitant]
     Dosage: UNK
     Dates: start: 20110901
  2. LEFLUNOMIDE [Concomitant]
     Dosage: UNK
     Dates: start: 20110901
  3. ENBREL [Suspect]
     Indication: RHEUMATOID ARTHRITIS
     Dosage: 50 MG, QWK
     Route: 058
     Dates: start: 20110914, end: 20110921
  4. LEXAPRO [Concomitant]
  5. XANAX [Concomitant]

REACTIONS (9)
  - PAIN [None]
  - MUSCULOSKELETAL PAIN [None]
  - MUSCULOSKELETAL CHEST PAIN [None]
  - PAIN IN JAW [None]
  - NAUSEA [None]
  - BACK PAIN [None]
  - EAR PAIN [None]
  - PAIN IN EXTREMITY [None]
  - FATIGUE [None]
